FAERS Safety Report 13211974 (Version 2)
Quarter: 2017Q1

REPORT INFORMATION
  Report Type: Report from Study
  Country: GB (occurrence: GB)
  Receive Date: 20170210
  Receipt Date: 20170224
  Transmission Date: 20170428
  Serious: Yes (Other)
  Sender: FDA-Public Use
  Company Number: GB-JNJFOC-20170205155

PATIENT
  Sex: Female

DRUGS (1)
  1. STELARA [Suspect]
     Active Substance: USTEKINUMAB
     Indication: PSORIATIC ARTHROPATHY
     Route: 058

REACTIONS (5)
  - Folate deficiency [Unknown]
  - Lower respiratory tract infection [Unknown]
  - Blood iron decreased [Recovering/Resolving]
  - Vitamin D deficiency [Unknown]
  - Fatigue [Unknown]
